FAERS Safety Report 7183621-5 (Version None)
Quarter: 2010Q4

REPORT INFORMATION
  Report Type: 
  Country: None (occurrence: None)
  Receive Date: 20101220
  Receipt Date: 20101220
  Transmission Date: 20110411
  Serious: Yes (Hospitalization)
  Sender: FDA-Public Use
  Company Number: None

PATIENT
  Age: 40 Year
  Sex: Male
  Weight: 134.4 kg

DRUGS (12)
  1. FLEXERIL [Suspect]
     Indication: BACK PAIN
     Dosage: 10 MG QD PRN PO   ADDED RECENTLY
     Route: 048
  2. MS CONTIN [Suspect]
     Indication: BACK PAIN
     Dosage: 100MG Q12HR PO  CHRONIC
     Route: 048
  3. PERCOCET [Suspect]
  4. ALPRAZOLAM [Suspect]
  5. ALBUTEROL [Concomitant]
  6. RISPERDAL [Concomitant]
  7. NEXIUM [Concomitant]
  8. SENOKET [Concomitant]
  9. ZYRTEC [Concomitant]
  10. WELLBUTRIN [Concomitant]
  11. COREG [Concomitant]
  12. METFORMN [Concomitant]

REACTIONS (3)
  - OVERDOSE [None]
  - PNEUMONIA ASPIRATION [None]
  - TOXIC ENCEPHALOPATHY [None]
